FAERS Safety Report 15249229 (Version 1)
Quarter: 2018Q3

REPORT INFORMATION
  Report Type: Spontaneous
  Country: US (occurrence: US)
  Receive Date: 20180807
  Receipt Date: 20180807
  Transmission Date: 20181010
  Serious: No
  Sender: FDA-Public Use
  Company Number: US-PERRIGO-17US025986

PATIENT
  Age: 73 Year
  Sex: Male
  Weight: 80.73 kg

DRUGS (3)
  1. COD LIVER OIL [Concomitant]
     Active Substance: COD LIVER OIL
     Indication: SUPPLEMENTATION THERAPY
     Dosage: UNK
     Route: 048
  2. LORATADINE. [Suspect]
     Active Substance: LORATADINE
     Dosage: 10 MG, SINGLE
     Route: 048
     Dates: start: 20170814, end: 20170814
  3. LORATADINE. [Suspect]
     Active Substance: LORATADINE
     Indication: HYPERSENSITIVITY
     Dosage: 10 MG, QD, PRN
     Route: 048
     Dates: start: 2016, end: 2016

REACTIONS (3)
  - Expired product administered [Recovered/Resolved]
  - Atrial fibrillation [Not Recovered/Not Resolved]
  - Off label use [Recovered/Resolved]

NARRATIVE: CASE EVENT DATE: 2016
